FAERS Safety Report 7823756 (Version 5)
Quarter: 2015Q1

REPORT INFORMATION
  Report Type: Spontaneous
  Country: US (occurrence: US)
  Receive Date: 20110223
  Receipt Date: 20150302
  Transmission Date: 20150721
  Serious: Yes (Hospitalization, Disabling)
  Sender: FDA-Public Use
  Company Number: US-BAYER-2011-003497

PATIENT
  Age: 23 Year
  Sex: Female

DRUGS (4)
  1. CITALOPRAM [Concomitant]
     Active Substance: CITALOPRAM HYDROBROMIDE
  2. YASMIN [Suspect]
     Active Substance: DROSPIRENONE\ETHINYL ESTRADIOL
     Indication: ACNE
     Dosage: UNK
     Dates: start: 2007, end: 200910
  3. MANNITOL. [Concomitant]
     Active Substance: MANNITOL
  4. YAZ [Suspect]
     Active Substance: DROSPIRENONE\ETHINYL ESTRADIOL
     Indication: ACNE
     Dosage: UNK
     Dates: start: 2007, end: 200710

REACTIONS (7)
  - Dizziness [Unknown]
  - Balance disorder [Unknown]
  - Cerebrovascular accident [Unknown]
  - Hypertrichosis [Unknown]
  - Nausea [Unknown]
  - Pain [Unknown]
  - Brain oedema [Unknown]

NARRATIVE: CASE EVENT DATE: 20090816
